FAERS Safety Report 20411312 (Version 2)
Quarter: 2022Q1

REPORT INFORMATION
  Report Type: Spontaneous
  Country: US (occurrence: US)
  Receive Date: 20220201
  Receipt Date: 20220202
  Transmission Date: 20220423
  Serious: No
  Sender: FDA-Public Use
  Company Number: US-BAYER-2022A016399

PATIENT
  Age: 70 Year
  Sex: Female

DRUGS (2)
  1. CLARITIN [Suspect]
     Active Substance: LORATADINE
     Indication: Allergic respiratory symptom
     Dosage: 1 DF
     Route: 048
     Dates: start: 202201, end: 202201
  2. CLARITIN [Suspect]
     Active Substance: LORATADINE
     Indication: Nasopharyngitis

REACTIONS (2)
  - Drug ineffective [Unknown]
  - Suspected product quality issue [Unknown]
